FAERS Safety Report 10874103 (Version 1)
Quarter: 2015Q1

REPORT INFORMATION
  Report Type: Spontaneous
  Country: FR (occurrence: FR)
  Receive Date: 20150227
  Receipt Date: 20150227
  Transmission Date: 20150721
  Serious: Yes (Hospitalization)
  Sender: FDA-Public Use
  Company Number: FR-PFIZER INC-2015067191

PATIENT
  Age: 19 Year
  Sex: Male

DRUGS (11)
  1. MAG 2 [Concomitant]
     Active Substance: MAGNESIUM CHLORIDE
     Dosage: ONE CAPSULE IN THE MORNING AND ONE CAPSULE IN THE EVENING
  2. VITAMIN A [Concomitant]
     Active Substance: VITAMIN A
     Dosage: ONE APPLICATION IN THE EVENING
  3. TOCO 500 [Concomitant]
     Dosage: 2 DF, DAILY
  4. TRACLEER [Suspect]
     Active Substance: BOSENTAN\BOSENTAN MONOHYDRATE
     Indication: PULMONARY ARTERIAL HYPERTENSION
     Dosage: 62.5 MG, 2X/DAY
     Route: 048
     Dates: start: 20131122
  5. SERETIDE [Concomitant]
     Active Substance: FLUTICASONE FUROATE\SALMETEROL XINAFOATE
     Dosage: 2 PUFFS IN THE MORNING AND 2 PUFFS IN THE EVENING
  6. DACUDOSE [Concomitant]
     Dosage: 1 DF, DAILY
  7. TARDYFERON [Concomitant]
     Active Substance: FERROUS SULFATE\FOLIC ACID
     Dosage: 1 DF, DAILY
  8. CALCIDOSE [Concomitant]
     Active Substance: CALCIUM CARBONATE
     Dosage: ONE DF IN THE MORNING AND ONE DF IN THE EVENING
  9. REVATIO [Suspect]
     Active Substance: SILDENAFIL CITRATE
     Indication: PULMONARY ARTERIAL HYPERTENSION
     Dosage: 20 MG, 3X/DAY
     Route: 048
     Dates: start: 20131122
  10. ANDROTARDYL [Concomitant]
     Active Substance: TESTOSTERONE
     Dosage: 150 MG, MONTHLY
  11. ADALAT [Concomitant]
     Active Substance: NIFEDIPINE
     Dosage: 3 DF, DAILY

REACTIONS (1)
  - Anaemia [Not Recovered/Not Resolved]

NARRATIVE: CASE EVENT DATE: 20140205
